FAERS Safety Report 25413077 (Version 1)
Quarter: 2025Q2

REPORT INFORMATION
  Report Type: Spontaneous
  Country: US (occurrence: None)
  Receive Date: 20250606
  Receipt Date: 20250606
  Transmission Date: 20250717
  Serious: Yes (Hospitalization, Disabling, Other)
  Sender: FDA-CTU
  Company Number: None

PATIENT
  Age: 33 Year
  Sex: Male
  Weight: 58.5 kg

DRUGS (1)
  1. SERTRALINE [Suspect]
     Active Substance: SERTRALINE HYDROCHLORIDE

REACTIONS (14)
  - Withdrawal syndrome [None]
  - Akathisia [None]
  - Electric shock sensation [None]
  - Fatigue [None]
  - Nervous system disorder [None]
  - Gastrointestinal disorder [None]
  - Panic attack [None]
  - Food allergy [None]
  - Weight decreased [None]
  - Vertigo [None]
  - Photophobia [None]
  - Hyperacusis [None]
  - Balance disorder [None]
  - Job dissatisfaction [None]

NARRATIVE: CASE EVENT DATE: 20200604
